FAERS Safety Report 12564206 (Version 2)
Quarter: 2016Q3

REPORT INFORMATION
  Report Type: Report from Study
  Country: AT (occurrence: AT)
  Receive Date: 20160718
  Receipt Date: 20160720
  Transmission Date: 20161109
  Serious: Yes (Death, Hospitalization, Other)
  Sender: FDA-Public Use
  Company Number: PHHY2015AT149467

PATIENT
  Age: 71 Year
  Sex: Female
  Weight: 85 kg

DRUGS (7)
  1. PENICILLIN [Concomitant]
     Active Substance: PENICILLIN
     Indication: PRODUCT USED FOR UNKNOWN INDICATION
     Dosage: UNK
     Route: 065
     Dates: start: 20160108
  2. NORVASC [Concomitant]
     Active Substance: AMLODIPINE BESYLATE
     Indication: PRODUCT USED FOR UNKNOWN INDICATION
     Dosage: MORNINGS
     Route: 065
  3. TAZONAM [Concomitant]
     Active Substance: TAZOBACTAM
     Indication: PRODUCT USED FOR UNKNOWN INDICATION
     Dosage: 4/0.5G  3X1
     Route: 042
  4. EXEMESTAN [Concomitant]
     Active Substance: EXEMESTANE
     Indication: PRODUCT USED FOR UNKNOWN INDICATION
     Dosage: 25 MG, QD
     Route: 065
     Dates: start: 20151028
  5. VIBRAVENOS [Concomitant]
     Indication: PRODUCT USED FOR UNKNOWN INDICATION
     Route: 065
  6. CIPROXIN [Concomitant]
     Active Substance: CIPROFLOXACIN
     Indication: PRODUCT USED FOR UNKNOWN INDICATION
     Dosage: 500 MG, BID
     Route: 065
     Dates: start: 20160107
  7. AFINITOR [Suspect]
     Active Substance: EVEROLIMUS
     Indication: BREAST CANCER
     Dosage: 5 MG, QD
     Route: 065
     Dates: start: 20151028, end: 20160613

REACTIONS (36)
  - Cardiac failure [Fatal]
  - Haemorrhage [Unknown]
  - Oedema peripheral [Unknown]
  - Diarrhoea [Unknown]
  - Pleural effusion [Unknown]
  - Supraventricular tachycardia [Unknown]
  - Hypoxia [Unknown]
  - Pneumonia [Not Recovered/Not Resolved]
  - Lung consolidation [Unknown]
  - Nausea [Unknown]
  - Hypersensitivity [Unknown]
  - Dyspnoea [Unknown]
  - Thrombophlebitis [Unknown]
  - Tachypnoea [Unknown]
  - Crepitations [Unknown]
  - Pyrexia [Recovering/Resolving]
  - Aortic elongation [Unknown]
  - Hepatic steatosis [Not Recovered/Not Resolved]
  - Blood pressure systolic increased [Unknown]
  - Metaplasia [Unknown]
  - Headache [Unknown]
  - Urinary tract infection [Recovering/Resolving]
  - Left ventricular enlargement [Unknown]
  - Aortic arteriosclerosis [Unknown]
  - Pruritus [Recovered/Resolved]
  - Acute respiratory distress syndrome [Fatal]
  - Cough [Unknown]
  - Interstitial lung disease [Unknown]
  - Glomerular filtration rate decreased [Unknown]
  - Pain [Not Recovered/Not Resolved]
  - Respiratory failure [Unknown]
  - Malaise [Unknown]
  - Simplex virus test positive [Unknown]
  - Stomatitis [Recovered/Resolved]
  - Tongue oedema [Not Recovered/Not Resolved]
  - Fatigue [Not Recovered/Not Resolved]

NARRATIVE: CASE EVENT DATE: 20151108
